FAERS Safety Report 5238239-8 (Version None)
Quarter: 2007Q1

REPORT INFORMATION
  Report Type: 
  Country: None (occurrence: None)
  Receive Date: 20070215
  Receipt Date: 20070206
  Transmission Date: 20070707
  Serious: Yes (Life-Threatening)
  Sender: FDA-Public Use
  Company Number: DE-AVENTIS-200710306DE

PATIENT
  Age: 75 Year
  Sex: Male
  Weight: 101 kg

DRUGS (5)
  1. CODE UNBROKEN [Suspect]
     Indication: PROPHYLAXIS
  2. DOCETAXEL [Suspect]
     Route: 042
     Dates: start: 20070202, end: 20070202
  3. CARBOPLATIN [Suspect]
     Route: 042
     Dates: start: 20070202, end: 20070202
  4. ONDANSETRON [Concomitant]
     Indication: CHEMOTHERAPY
     Route: 042
     Dates: start: 20070202, end: 20070202
  5. FORTECORTIN                        /00016001/ [Concomitant]
     Indication: CHEMOTHERAPY
     Dosage: DOSE: ROUTE IV / ORALLY
     Dates: start: 20070202, end: 20070202

REACTIONS (1)
  - RESUSCITATION [None]
